APPROVED DRUG PRODUCT: A-HYDROCORT
Active Ingredient: HYDROCORTISONE SODIUM SUCCINATE
Strength: EQ 250MG BASE/VIAL
Dosage Form/Route: INJECTABLE;INJECTION
Application: A089578 | Product #001
Applicant: ABBOTT LABORATORIES HOSP PRODUCTS DIV
Approved: Apr 11, 1989 | RLD: No | RS: No | Type: DISCN